FAERS Safety Report 15740341 (Version 2)
Quarter: 2019Q3

REPORT INFORMATION
  Report Type: Spontaneous
  Country: US (occurrence: US)
  Receive Date: 20181219
  Receipt Date: 20190927
  Transmission Date: 20191004
  Serious: Yes (Hospitalization, Other)
  Sender: FDA-Public Use
  Company Number: US-GLAXOSMITHKLINE-US2018GSK226514

PATIENT
  Age: 46 Year
  Sex: Male

DRUGS (2)
  1. VENTOLIN [Suspect]
     Active Substance: ALBUTEROL SULFATE
     Indication: RESPIRATORY DISORDER
     Dosage: UNK
     Route: 055
  2. FLOVENT HFA [Suspect]
     Active Substance: FLUTICASONE PROPIONATE
     Indication: RESPIRATORY DISORDER
     Dosage: UNK
     Route: 055

REACTIONS (5)
  - Muscle rupture [Unknown]
  - Surgery [Unknown]
  - Fall [Unknown]
  - Unevaluable event [Unknown]
  - Tendon rupture [Unknown]

NARRATIVE: CASE EVENT DATE: 201812
